FAERS Safety Report 20739116 (Version 5)
Quarter: 2022Q3

REPORT INFORMATION
  Report Type: Report from Study
  Country: US (occurrence: US)
  Receive Date: 20220422
  Receipt Date: 20220707
  Transmission Date: 20221027
  Serious: No
  Sender: FDA-Public Use
  Company Number: US-NOVARTISTESTPH-NVSC2022US092817

PATIENT
  Sex: Male

DRUGS (1)
  1. ENTRESTO [Suspect]
     Active Substance: SACUBITRIL\VALSARTAN
     Indication: Product used for unknown indication
     Dosage: 1 DOSAGE FORM, BID
     Route: 048

REACTIONS (6)
  - Musculoskeletal stiffness [Unknown]
  - Feeling abnormal [Unknown]
  - Dry mouth [Unknown]
  - Circadian rhythm sleep disorder [Unknown]
  - Pain [Unknown]
  - Fatigue [Unknown]
